FAERS Safety Report 5075722-2 (Version None)
Quarter: 2006Q3

REPORT INFORMATION
  Report Type: 
  Country: None (occurrence: None)
  Receive Date: 20060809
  Receipt Date: 20060801
  Transmission Date: 20061208
  Serious: Yes (Hospitalization)
  Sender: FDA-Public Use
  Company Number: US-BRISTOL-MYERS SQUIBB COMPANY-13461637

PATIENT
  Age: 35 Year
  Sex: Female
  Weight: 80 kg

DRUGS (3)
  1. SPRYCEL [Suspect]
     Indication: CHRONIC MYELOID LEUKAEMIA
     Route: 048
     Dates: start: 20060721
  2. LEVAQUIN [Concomitant]
  3. GLEEVEC [Concomitant]

REACTIONS (5)
  - COUGH [None]
  - HEADACHE [None]
  - INTRACRANIAL PRESSURE INCREASED [None]
  - NAUSEA [None]
  - VOMITING [None]
